FAERS Safety Report 11221636 (Version 1)
Quarter: 2015Q2

REPORT INFORMATION
  Report Type: Report from Study
  Country: DE (occurrence: DE)
  Receive Date: 20150626
  Receipt Date: 20150626
  Transmission Date: 20150821
  Serious: Yes (Hospitalization)
  Sender: FDA-Public Use
  Company Number: DE-ABBVIE-15P-062-1400636-00

PATIENT
  Age: 57 Year
  Sex: Female
  Weight: 40 kg

DRUGS (1)
  1. DUODOPA [Suspect]
     Active Substance: CARBIDOPA\LEVODOPA
     Indication: PARKINSON^S DISEASE
     Dosage: MD 2.0 ML, CRD 1.4 ML/H, CRN 1.0 ML/H
     Route: 050
     Dates: start: 20150116

REACTIONS (6)
  - Pneumonia aspiration [Recovering/Resolving]
  - Cachexia [Unknown]
  - Parkinson^s disease [Recovering/Resolving]
  - General physical health deterioration [Recovering/Resolving]
  - Pyrexia [Not Recovered/Not Resolved]
  - Dysphagia [Recovering/Resolving]

NARRATIVE: CASE EVENT DATE: 20150523
